FAERS Safety Report 17757996 (Version 1)
Quarter: 2020Q2

REPORT INFORMATION
  Report Type: Spontaneous
  Country: GB (occurrence: GB)
  Receive Date: 20200507
  Receipt Date: 20200507
  Transmission Date: 20200714
  Serious: Yes (Hospitalization)
  Sender: FDA-Public Use
  Company Number: NVSC2020GB123439

PATIENT
  Age: 56 Year
  Sex: Male
  Weight: 92.1 kg

DRUGS (4)
  1. SOMATROPIN. [Suspect]
     Active Substance: SOMATROPIN
     Indication: RATHKE^S CLEFT CYST
     Dosage: 0.2 MG (FIRST DOSE)
     Route: 058
     Dates: start: 20200124, end: 20200124
  2. HYDROCORTISONE. [Concomitant]
     Active Substance: HYDROCORTISONE
     Indication: HYPOPITUITARISM
     Dosage: 40 MG, QD
     Route: 048
     Dates: start: 201908
  3. TESTOGEL [Concomitant]
     Active Substance: TESTOSTERONE
     Indication: HYPOPITUITARISM
     Dosage: UNK
     Route: 061
     Dates: start: 201908
  4. LEVOTHYROXINE. [Concomitant]
     Active Substance: LEVOTHYROXINE
     Indication: HYPOPITUITARISM
     Dosage: 100 UG
     Route: 048
     Dates: start: 201908

REACTIONS (2)
  - Vomiting [Recovering/Resolving]
  - Pyrexia [Recovering/Resolving]

NARRATIVE: CASE EVENT DATE: 20200124
